FAERS Safety Report 6273607-7 (Version None)
Quarter: 2009Q3

REPORT INFORMATION
  Report Type: 
  Country: None (occurrence: None)
  Receive Date: 20090720
  Receipt Date: 20090427
  Transmission Date: 20100115
  Serious: No
  Sender: FDA-Public Use
  Company Number: US-BAYER-200919442NA

PATIENT
  Age: 26 Year
  Sex: Female

DRUGS (1)
  1. YAZ [Suspect]
     Indication: CONTRACEPTION
     Route: 048
     Dates: start: 20081101

REACTIONS (4)
  - HYPOMENORRHOEA [None]
  - MENSTRUATION DELAYED [None]
  - PRODUCT TASTE ABNORMAL [None]
  - VOMITING [None]
